FAERS Safety Report 7780511-1 (Version None)
Quarter: 2011Q3

REPORT INFORMATION
  Report Type: 
  Country: None (occurrence: None)
  Receive Date: 20110927
  Receipt Date: 20110919
  Transmission Date: 20111222
  Serious: Yes (Hospitalization)
  Sender: FDA-Public Use
  Company Number: US-UCBSA-041414

PATIENT
  Sex: Male
  Weight: 119.7 kg

DRUGS (20)
  1. CIMZIA [Suspect]
     Indication: CROHN'S DISEASE
     Route: 058
     Dates: start: 20110418
  2. AUGMENTIN '125' [Concomitant]
     Indication: CROHN'S DISEASE
     Dates: start: 20100901
  3. PROTONIX [Concomitant]
     Indication: CROHN'S DISEASE
  4. ONDANSETRON [Concomitant]
     Indication: NAUSEA
     Dosage: 4 MG Q6
  5. DILAUDID [Concomitant]
     Indication: PAIN
     Route: 048
     Dates: end: 20110101
  6. METHOTREXATE [Concomitant]
     Dates: start: 20110101, end: 20110101
  7. METHOTREXATE [Concomitant]
     Route: 058
     Dates: start: 20110101
  8. VITAMIN D SUPPLEMENT [Concomitant]
     Indication: CROHN'S DISEASE
  9. DILAUDID [Concomitant]
     Route: 048
     Dates: start: 20110101
  10. FLAGYL [Concomitant]
     Indication: CROHN'S DISEASE
     Dates: start: 20100701
  11. CIPROFLOXACIN [Concomitant]
     Indication: CROHN'S DISEASE
     Dates: start: 20100701
  12. PREDNISONE [Concomitant]
     Indication: CROHN'S DISEASE
     Dates: start: 20061101
  13. OXYCODONE [Concomitant]
     Indication: PAIN
     Route: 048
  14. BUDESONIDE [Concomitant]
     Dosage: TOTAL DAILY DOSE : 9 MG
     Route: 048
  15. DILAUDID [Concomitant]
     Route: 042
     Dates: start: 20110101, end: 20110101
  16. CALCIUM SUPPLEMENT [Concomitant]
     Indication: CROHN'S DISEASE
  17. FOLIC ACID [Concomitant]
     Dosage: TOTAL DALY DOSE : 1 MG
  18. OXYCODONE [Concomitant]
     Dosage: 20 MG Q4 X 5 DAYS
  19. DOCUSATE [Concomitant]
  20. METHOTREXATE [Concomitant]
     Indication: CROHN'S DISEASE
     Route: 058
     Dates: start: 20110401, end: 20110101

REACTIONS (3)
  - CROHN'S DISEASE [None]
  - ANAL ABSCESS [None]
  - ANAL FISTULA [None]
